FAERS Safety Report 8917562 (Version 4)
Quarter: 2013Q1

REPORT INFORMATION
  Report Type: Spontaneous
  Country: US (occurrence: US)
  Receive Date: 20121119
  Receipt Date: 20130326
  Transmission Date: 20140127
  Serious: No
  Sender: FDA-Public Use
  Company Number: US-009507513-1211USA006931

PATIENT
  Age: 18 Year
  Sex: Female
  Weight: 79.82 kg

DRUGS (2)
  1. IMPLANON [Suspect]
     Indication: CONTRACEPTION
     Dosage: UNK
     Route: 059
  2. IMPLANON [Suspect]
     Dosage: UNK
     Route: 059
     Dates: start: 20110316, end: 20121204

REACTIONS (7)
  - Metrorrhagia [Unknown]
  - Acne [Unknown]
  - Weight increased [Unknown]
  - Libido decreased [Unknown]
  - Device difficult to use [Recovered/Resolved]
  - Device difficult to use [Recovered/Resolved]
  - Device deployment issue [Recovered/Resolved]
